FAERS Safety Report 8034553-1 (Version None)
Quarter: 2012Q1

REPORT INFORMATION
  Report Type: 
  Country: None (occurrence: None)
  Receive Date: 20120110
  Receipt Date: 20120104
  Transmission Date: 20120608
  Serious: Yes (Other)
  Sender: FDA-Public Use
  Company Number: US-ABBOTT-12P-163-0890006-00

PATIENT
  Sex: Female

DRUGS (7)
  1. HUMIRA [Suspect]
     Indication: CROHN'S DISEASE
     Dosage: ONCE
     Dates: start: 20110506, end: 20110506
  2. HUMIRA [Suspect]
     Dosage: ONCE
     Dates: start: 20111216, end: 20111216
  3. XL 184 [Concomitant]
     Indication: NEOPLASM MALIGNANT
     Dates: start: 20100501, end: 20110501
  4. HUMIRA [Suspect]
     Dosage: ONCE
     Dates: start: 20110520, end: 20110520
  5. ZENZAR [Concomitant]
     Indication: CHEMOTHERAPY
  6. HUMIRA [Suspect]
     Dates: start: 20111230, end: 20111230
  7. HUMIRA [Suspect]
     Dates: end: 20110729

REACTIONS (9)
  - SMALL INTESTINE CARCINOMA [None]
  - RECTAL HAEMORRHAGE [None]
  - PAIN [None]
  - BOWEL MOVEMENT IRREGULARITY [None]
  - GASTROINTESTINAL CARCINOMA [None]
  - CARBOHYDRATE ANTIGEN 125 INCREASED [None]
  - FUNCTIONAL GASTROINTESTINAL DISORDER [None]
  - VOMITING [None]
  - INTESTINAL OBSTRUCTION [None]
